FAERS Safety Report 19788085 (Version 1)
Quarter: 2021Q3

REPORT INFORMATION
  Report Type: Spontaneous
  Country: US (occurrence: US)
  Receive Date: 20210903
  Receipt Date: 20210903
  Transmission Date: 20211014
  Serious: No
  Sender: FDA-Public Use
  Company Number: US-BRAINTREE LABORATORIES, INC.-2021BTE00672

PATIENT
  Age: 78 Year
  Sex: Female

DRUGS (7)
  1. CALCIUM [Concomitant]
     Active Substance: CALCIUM
  2. VITAMIN D12 [Concomitant]
  3. VITAMIN D3 [Concomitant]
     Active Substance: CHOLECALCIFEROL
  4. SUTAB [Suspect]
     Active Substance: MAGNESIUM SULFATE\POTASSIUM CHLORIDE\SODIUM SULFATE
     Indication: COLONOSCOPY
     Dosage: 1 X 12 TABLETS, 1X
     Route: 048
     Dates: start: 20210801, end: 20210801
  5. UNSPECIFIED HIGH BLOOD PRESSURE PILLS [Concomitant]
  6. RESTASIS [Concomitant]
     Active Substance: CYCLOSPORINE
  7. OMEPRAZOLE. [Concomitant]
     Active Substance: OMEPRAZOLE

REACTIONS (3)
  - Vomiting [Recovered/Resolved]
  - Abdominal pain upper [Recovered/Resolved]
  - Nausea [Recovered/Resolved]

NARRATIVE: CASE EVENT DATE: 20210801
